FAERS Safety Report 11792677 (Version 3)
Quarter: 2016Q1

REPORT INFORMATION
  Report Type: Spontaneous
  Country: US (occurrence: US)
  Receive Date: 20151202
  Receipt Date: 20160202
  Transmission Date: 20160525
  Serious: Yes (Hospitalization)
  Sender: FDA-Public Use
  Company Number: US-AUROBINDO-AUR-APL-2015-10782

PATIENT
  Age: 30 Year
  Sex: Male

DRUGS (12)
  1. DILTIAZEM [Concomitant]
     Active Substance: DILTIAZEM
     Indication: PRODUCT USED FOR UNKNOWN INDICATION
     Route: 042
  2. DILTIAZEM [Concomitant]
     Active Substance: DILTIAZEM
     Route: 042
  3. METOPROLOL. [Suspect]
     Active Substance: METOPROLOL
     Dosage: 1.3 G, UNK
  4. METOPROLOL. [Suspect]
     Active Substance: METOPROLOL
     Indication: PRODUCT USED FOR UNKNOWN INDICATION
     Dosage: UNK
     Route: 042
  5. CLONIDINE. [Concomitant]
     Active Substance: CLONIDINE
     Route: 048
  6. CLONIDINE. [Concomitant]
     Active Substance: CLONIDINE
     Indication: PRODUCT USED FOR UNKNOWN INDICATION
     Route: 048
  7. ESMOLOL HYDROCHLORIDE INJECTION [Suspect]
     Active Substance: ESMOLOL HYDROCHLORIDE
     Dosage: 300 ?G/KG/MIN
     Route: 042
  8. METOPROLOL. [Suspect]
     Active Substance: METOPROLOL
     Indication: PRODUCT USED FOR UNKNOWN INDICATION
     Dosage: UNK
     Route: 048
  9. LABETALOL [Suspect]
     Active Substance: LABETALOL\LABETALOL HYDROCHLORIDE
     Dosage: UNK
     Route: 048
  10. ESMOLOL HYDROCHLORIDE INJECTION [Suspect]
     Active Substance: ESMOLOL HYDROCHLORIDE
     Indication: PRODUCT USED FOR UNKNOWN INDICATION
     Dosage: UNK
     Route: 042
  11. LABETALOL [Suspect]
     Active Substance: LABETALOL\LABETALOL HYDROCHLORIDE
     Indication: PRODUCT USED FOR UNKNOWN INDICATION
     Route: 042
  12. NITROPRUSSIDE [Concomitant]
     Active Substance: NITROPRUSSIDE
     Indication: PRODUCT USED FOR UNKNOWN INDICATION
     Route: 065

REACTIONS (13)
  - Ventricular dysfunction [Recovered/Resolved]
  - Acute kidney injury [Unknown]
  - Hypotension [Recovered/Resolved]
  - Condition aggravated [Unknown]
  - Blood lactic acid increased [Unknown]
  - Oliguria [Unknown]
  - Toxicity to various agents [Recovered/Resolved]
  - Hypoglycaemia [Recovered/Resolved]
  - Abdominal distension [Unknown]
  - International normalised ratio increased [Unknown]
  - Blood creatinine increased [Unknown]
  - Cardiomyopathy [Recovered/Resolved]
  - Overdose [Recovered/Resolved]
